FAERS Safety Report 4534122-1 (Version None)
Quarter: 2004Q4

REPORT INFORMATION
  Report Type: 
  Country: None (occurrence: None)
  Receive Date: 20041214
  Receipt Date: 20040827
  Transmission Date: 20050328
  Serious: No
  Sender: FDA-Public Use
  Company Number: USA040876739

PATIENT
  Sex: Male

DRUGS (1)
  1. CIALIS [Suspect]

REACTIONS (1)
  - SWELLING FACE [None]
